FAERS Safety Report 26036898 (Version 1)
Quarter: 2025Q4

REPORT INFORMATION
  Report Type: Spontaneous
  Country: US (occurrence: US)
  Receive Date: 20251112
  Receipt Date: 20251112
  Transmission Date: 20260118
  Serious: No
  Sender: PFIZER
  Company Number: US-PFIZER INC-202500192565

PATIENT
  Age: 71 Year
  Sex: Female
  Weight: 80.5 kg

DRUGS (3)
  1. VYNDAMAX [Suspect]
     Active Substance: TAFAMIDIS
     Indication: Acquired ATTR amyloidosis
     Dosage: ONE 61 MG TAFAMIDIS CAPSULE ORALLY ONCE DAILY
     Route: 048
     Dates: start: 20250910
  2. XALATAN [Concomitant]
     Active Substance: LATANOPROST
     Dosage: 1 DROP, DAILY (NIGHTLY - EACH EYE)
     Route: 047
  3. CRESTOR [Concomitant]
     Active Substance: ROSUVASTATIN CALCIUM
     Dosage: TAKE 1 TABLET (5 MG TOTAL) BY MOUTH DAILY - ORAL
     Route: 048

REACTIONS (1)
  - Vomiting [Unknown]
